FAERS Safety Report 6496362-4 (Version None)
Quarter: 2009Q4

REPORT INFORMATION
  Report Type: 
  Country: None (occurrence: None)
  Receive Date: 20091214
  Receipt Date: 20091209
  Transmission Date: 20100525
  Serious: Yes (Other)
  Sender: FDA-Public Use
  Company Number: BR-B.I. PHARMACEUTICALS,INC./RIDGEFIELD-2009-BR-01231BR

PATIENT
  Sex: Female

DRUGS (1)
  1. ATENSINA [Suspect]
     Dosage: 6 MG
     Route: 048
     Dates: start: 20091209, end: 20091209

REACTIONS (1)
  - OVERDOSE [None]
